FAERS Safety Report 4790145-9 (Version None)
Quarter: 2005Q4

REPORT INFORMATION
  Report Type: 
  Country: None (occurrence: None)
  Receive Date: 20051005
  Receipt Date: 20051005
  Transmission Date: 20060501
  Serious: Yes (Life-Threatening, Hospitalization)
  Sender: FDA-Public Use
  Company Number: None

PATIENT
  Age: 56 Year
  Sex: Female

DRUGS (4)
  1. LIDOCAINE [Suspect]
     Indication: ANAESTHESIA
  2. LORAZEPAM [Concomitant]
  3. ROSIGLITAZONE/METFORMIN [Concomitant]
  4. HYDROCHLOROTHIAZIDE [Concomitant]

REACTIONS (8)
  - BLOOD PRESSURE SYSTOLIC INCREASED [None]
  - DYSPHAGIA [None]
  - DYSPNOEA [None]
  - FEELING HOT [None]
  - FLUSHING [None]
  - PALPITATIONS [None]
  - PHARYNGEAL OEDEMA [None]
  - RESPIRATORY RATE INCREASED [None]
